FAERS Safety Report 13502163 (Version 1)
Quarter: 2017Q2

REPORT INFORMATION
  Report Type: Spontaneous
  Country: US (occurrence: US)
  Receive Date: 20170502
  Receipt Date: 20170502
  Transmission Date: 20170830
  Serious: No
  Sender: FDA-Public Use
  Company Number: US-TEVA-756511ACC

PATIENT
  Age: 71 Year
  Sex: Female

DRUGS (1)
  1. DICLOFENAC DR [Suspect]
     Active Substance: DICLOFENAC SODIUM
     Indication: ARTHRALGIA
     Route: 065
     Dates: start: 20170316, end: 2017

REACTIONS (7)
  - Palpitations [Recovered/Resolved]
  - Dizziness [Recovered/Resolved]
  - Feeling drunk [Recovered/Resolved]
  - Abdominal pain upper [Recovered/Resolved]
  - Nausea [Recovered/Resolved]
  - Headache [Recovered/Resolved]
  - Disturbance in attention [Recovered/Resolved]

NARRATIVE: CASE EVENT DATE: 20170317
